FAERS Safety Report 6897786-3 (Version None)
Quarter: 2010Q3

REPORT INFORMATION
  Report Type: 
  Country: None (occurrence: None)
  Receive Date: 20100802
  Receipt Date: 20070713
  Transmission Date: 20110219
  Serious: Yes (Other)
  Sender: FDA-Public Use
  Company Number: US-PFIZER INC-2007028096

PATIENT
  Age: 81 Year
  Sex: Female
  Weight: 82.6 kg

DRUGS (4)
  1. LYRICA [Suspect]
     Indication: PAIN
     Dates: start: 20070404
  2. LYRICA [Suspect]
  3. LYRICA [Suspect]
     Indication: MUSCLE SPASMS
  4. LYRICA [Suspect]
     Indication: HERPES ZOSTER

REACTIONS (7)
  - BALANCE DISORDER [None]
  - DISTURBANCE IN ATTENTION [None]
  - FEAR [None]
  - FEELING DRUNK [None]
  - GAIT DISTURBANCE [None]
  - INJURY [None]
  - SOMNOLENCE [None]
